FAERS Safety Report 17653514 (Version 1)
Quarter: 2020Q2

REPORT INFORMATION
  Report Type: Spontaneous
  Country: US (occurrence: US)
  Receive Date: 20200410
  Receipt Date: 20200410
  Transmission Date: 20200713
  Serious: No
  Sender: FDA-Public Use
  Company Number: US-SA-2020SA090779

PATIENT
  Age: 8 Year
  Sex: Female

DRUGS (1)
  1. CHILDRENS ALLEGRA ALLERGY [Suspect]
     Active Substance: FEXOFENADINE HYDROCHLORIDE
     Indication: HYPERSENSITIVITY
     Dosage: 30 MG, 1X
     Route: 065
     Dates: start: 20200331

REACTIONS (2)
  - Affective disorder [Unknown]
  - Abnormal behaviour [Unknown]
